FAERS Safety Report 10791514 (Version 1)
Quarter: 2015Q1

REPORT INFORMATION
  Report Type: Spontaneous
  Country: US (occurrence: US)
  Receive Date: 20150213
  Receipt Date: 20150213
  Transmission Date: 20150721
  Serious: Yes (Other)
  Sender: FDA-Public Use
  Company Number: US-ASTRAZENECA-2015SE13106

PATIENT
  Age: 57 Year
  Sex: Female
  Weight: 64.9 kg

DRUGS (9)
  1. LOSARTAN AND HYDROCHLOROTHIAZIDE [Concomitant]
     Active Substance: HYDROCHLOROTHIAZIDE\LOSARTAN POTASSIUM
     Indication: BLOOD PRESSURE ABNORMAL
     Dosage: 100/12.5 MG
     Route: 048
     Dates: start: 2013
  2. CARBOPLATIN. [Concomitant]
     Active Substance: CARBOPLATIN
     Indication: NEOPLASM MALIGNANT
     Dosage: EVERY THREE WEEKS
     Route: 042
  3. ATACAND HCT [Suspect]
     Active Substance: CANDESARTAN CILEXETIL\HYDROCHLOROTHIAZIDE
     Indication: HYPERTENSION
     Dosage: 16/12.5 MG, DAILY
     Route: 048
     Dates: start: 1999, end: 2013
  4. ATACAND HCT [Suspect]
     Active Substance: CANDESARTAN CILEXETIL\HYDROCHLOROTHIAZIDE
     Indication: HYPERTENSION
     Dosage: 16/12.5 MG, DAILY
     Route: 048
     Dates: start: 2013
  5. GABAPENTIN. [Concomitant]
     Active Substance: GABAPENTIN
     Indication: NEUROPATHY PERIPHERAL
     Route: 048
     Dates: start: 2009
  6. TOPROL XL [Suspect]
     Active Substance: METOPROLOL SUCCINATE
     Indication: HYPERTENSION
     Route: 048
     Dates: start: 1999
  7. LISINOPRIL. [Suspect]
     Active Substance: LISINOPRIL
     Indication: HYPERTENSION
     Dosage: DAILY
     Route: 048
  8. HERCEPTIN [Concomitant]
     Active Substance: TRASTUZUMAB
     Indication: NEOPLASM MALIGNANT
     Dosage: ONCE A WEEK
     Route: 042
  9. TAXOTERE [Concomitant]
     Active Substance: DOCETAXEL
     Indication: NEOPLASM MALIGNANT
     Dosage: EVERY THREE WEEKS
     Route: 042

REACTIONS (5)
  - Cough [Unknown]
  - Breast cancer [Unknown]
  - Neuropathy peripheral [Unknown]
  - Blood pressure increased [Unknown]
  - Memory impairment [Unknown]

NARRATIVE: CASE EVENT DATE: 2008
